FAERS Safety Report 13585381 (Version 2)
Quarter: 2018Q3

REPORT INFORMATION
  Report Type: Spontaneous
  Country: US (occurrence: US)
  Receive Date: 20170526
  Receipt Date: 20180815
  Transmission Date: 20181010
  Serious: Yes (Hospitalization, Other)
  Sender: FDA-Public Use
  Company Number: US-ASTRAZENECA-2017SE53941

PATIENT
  Age: 62 Year
  Sex: Male
  Weight: 72.6 kg

DRUGS (38)
  1. SIMVASTATIN. [Concomitant]
     Active Substance: SIMVASTATIN
     Indication: BLOOD CHOLESTEROL
     Dosage: ONE Q DAY1.0DF AS REQUIRED
     Route: 065
  2. AMLODIPINE [Concomitant]
     Active Substance: AMLODIPINE BESYLATE
     Route: 048
     Dates: start: 20141117
  3. TRAMADOL. [Concomitant]
     Active Substance: TRAMADOL
     Indication: PAIN
     Route: 065
  4. ETODOLAC. [Concomitant]
     Active Substance: ETODOLAC
     Dosage: GENERIC
     Route: 048
     Dates: start: 20071213
  5. HYDROCO*APAP [Concomitant]
     Indication: PAIN
     Dosage: 5/12; TAKE ONE OR TWO TABLBTS WITH FOOO;GENERIC EVERY 4 ? 6 HOURS
     Route: 048
     Dates: start: 20140131
  6. RENVELA [Concomitant]
     Active Substance: SEVELAMER CARBONATE
     Route: 048
     Dates: start: 20151014
  7. LISINOPRIL. [Concomitant]
     Active Substance: LISINOPRIL
     Indication: BLOOD PRESSURE MEASUREMENT
     Dosage: Q?DAY1.0DF AS REQUIRED
     Route: 065
     Dates: start: 20141215
  8. HYDROCHLOROTHIAZIDE. [Concomitant]
     Active Substance: HYDROCHLOROTHIAZIDE
     Indication: BLOOD PRESSURE MEASUREMENT
     Dosage: GENERIC1.0DF AS REQUIRED
     Route: 048
     Dates: start: 20140210
  9. METFORMIN [Concomitant]
     Active Substance: METFORMIN HYDROCHLORIDE
     Dosage: ONE Q PM WITH FOOD FOR DIABETES1.0DF AS REQUIRED
     Route: 065
  10. CLINDAMYCIN. [Concomitant]
     Active Substance: CLINDAMYCIN
     Dosage: GENERIC
     Route: 048
     Dates: start: 20071107
  11. LYRICA [Concomitant]
     Active Substance: PREGABALIN
     Dosage: BEDTIME
     Route: 048
     Dates: start: 20080616
  12. SMZ/TMP [Concomitant]
     Active Substance: SULFAMETHOXAZOLE\TRIMETHOPRIM
     Route: 065
     Dates: start: 20150506
  13. PANTOPRAZOLE [Concomitant]
     Active Substance: PANTOPRAZOLE
     Indication: GASTROOESOPHAGEAL REFLUX DISEASE
     Dosage: ONE Q DAY AS REQUIRED
     Route: 040
  14. BYSTOLIC [Concomitant]
     Active Substance: NEBIVOLOL HYDROCHLORIDE
     Route: 065
     Dates: start: 20150506
  15. CEPHALEXIN. [Concomitant]
     Active Substance: CEPHALEXIN
     Indication: INFECTION
     Dosage: GENERIC500.0MG AS REQUIRED
     Route: 048
     Dates: start: 20070912
  16. ONDANSETRON [Concomitant]
     Active Substance: ONDANSETRON
     Indication: VOMITING
     Dosage: TAKE ONE TABLET EVERY 4 TO 6 HOURS1.0DF AS REQUIRED
     Route: 048
     Dates: start: 20140131
  17. ONDANSETRON [Concomitant]
     Active Substance: ONDANSETRON
     Indication: NAUSEA
     Dosage: TAKE ONE TABLET EVERY 4 TO 6 HOURS1.0DF AS REQUIRED
     Route: 048
     Dates: start: 20140131
  18. METRONIDAZOLE. [Concomitant]
     Active Substance: METRONIDAZOLE
     Route: 048
     Dates: start: 20110321
  19. NEXIUM [Suspect]
     Active Substance: ESOMEPRAZOLE MAGNESIUM
     Indication: GASTROOESOPHAGEAL REFLUX DISEASE
     Dosage: 1 DAILY
     Route: 048
     Dates: start: 20060920, end: 2014
  20. LISINOPRIL. [Concomitant]
     Active Substance: LISINOPRIL
     Indication: BLOOD PRESSURE MEASUREMENT
     Dosage: GENERIC1.0DF AS REQUIRED
     Route: 065
     Dates: start: 20060920
  21. HYDROCHLOROTHIAZIDE. [Concomitant]
     Active Substance: HYDROCHLOROTHIAZIDE
     Indication: BLOOD PRESSURE MEASUREMENT
     Dosage: Q?DAY1.0DF AS REQUIRED
     Route: 065
  22. BYSTOLIC [Concomitant]
     Active Substance: NEBIVOLOL HYDROCHLORIDE
     Route: 048
     Dates: start: 20150217
  23. CIALIS [Concomitant]
     Active Substance: TADALAFIL
     Dosage: ONE TABLET ONE HOUR BEFRE INTERCOURSE20.0MG AS REQUIRED
     Route: 048
     Dates: start: 20100610
  24. GABAPENTIN. [Concomitant]
     Active Substance: GABAPENTIN
     Route: 048
     Dates: start: 20150727
  25. SIMVASTATIN. [Concomitant]
     Active Substance: SIMVASTATIN
     Indication: BLOOD CHOLESTEROL
     Dosage: 1.0DF AS REQUIRED
     Route: 065
     Dates: start: 20090713
  26. PANTOPRAZOLE [Concomitant]
     Active Substance: PANTOPRAZOLE
     Indication: GASTROOESOPHAGEAL REFLUX DISEASE
     Dosage: GENERIC1.0DF AS REQUIRED
     Route: 048
     Dates: start: 20150311
  27. CARVEDILOL. [Concomitant]
     Active Substance: CARVEDILOL
     Dosage: AS REQUIRED
     Route: 065
  28. GABAPENTIN. [Concomitant]
     Active Substance: GABAPENTIN
     Route: 065
     Dates: start: 20150506
  29. SMZ/TMP [Concomitant]
     Active Substance: SULFAMETHOXAZOLE\TRIMETHOPRIM
     Route: 048
     Dates: start: 20051021
  30. NEXIUM [Suspect]
     Active Substance: ESOMEPRAZOLE MAGNESIUM
     Indication: DYSPEPSIA
     Dosage: 1.0DF AS REQUIRED
     Route: 048
  31. NEXIUM [Suspect]
     Active Substance: ESOMEPRAZOLE MAGNESIUM
     Indication: GASTROOESOPHAGEAL REFLUX DISEASE
     Dosage: 1.0DF AS REQUIRED
     Route: 048
  32. VIAGRA [Concomitant]
     Active Substance: SILDENAFIL CITRATE
     Dosage: 100.0MG AS REQUIRED
     Route: 065
  33. AMLODIPINE [Concomitant]
     Active Substance: AMLODIPINE BESYLATE
     Route: 048
     Dates: start: 20150217
  34. APAP/CODEINE [Concomitant]
     Active Substance: ACETAMINOPHEN\CODEINE PHOSPHATE
     Indication: PAIN
     Dosage: GENERIC
     Route: 048
     Dates: start: 20140604
  35. NEXIUM [Suspect]
     Active Substance: ESOMEPRAZOLE MAGNESIUM
     Indication: DYSPEPSIA
     Dosage: 1 DAILY
     Route: 048
     Dates: start: 20060920, end: 2014
  36. NAPROXEN. [Concomitant]
     Active Substance: NAPROXEN
     Dosage: ONE BID WITH FOOD PRN
     Route: 065
  37. HYDROCHLOROTHIAZIDE+LISINOPRIL [Concomitant]
     Indication: HYPERTENSION
     Dosage: 20?12.5 MG
     Route: 048
     Dates: start: 20090610
  38. RENVELA [Concomitant]
     Active Substance: SEVELAMER CARBONATE
     Route: 065
     Dates: start: 20150506

REACTIONS (4)
  - Chronic kidney disease [Not Recovered/Not Resolved]
  - Renal failure [Not Recovered/Not Resolved]
  - End stage renal disease [Unknown]
  - Acute kidney injury [Unknown]

NARRATIVE: CASE EVENT DATE: 2012
